FAERS Safety Report 24816707 (Version 3)
Quarter: 2025Q1

REPORT INFORMATION
  Report Type: Spontaneous
  Country: BR (occurrence: GB)
  Receive Date: 20250107
  Receipt Date: 20250211
  Transmission Date: 20250409
  Serious: Yes (Other)
  Sender: ORGANON
  Company Number: BR-ORGANON-O2501BRA000050

PATIENT
  Age: 27 Year
  Sex: Female

DRUGS (2)
  1. ETONOGESTREL [Suspect]
     Active Substance: ETONOGESTREL
     Indication: Contraception
     Route: 059
     Dates: start: 201605
  2. ETONOGESTREL [Concomitant]
     Active Substance: ETONOGESTREL
     Indication: Contraception
     Route: 059
     Dates: end: 201605

REACTIONS (9)
  - Monoplegia [Recovering/Resolving]
  - Complication of device removal [Not Recovered/Not Resolved]
  - Anxiety [Not Recovered/Not Resolved]
  - Device placement issue [Not Recovered/Not Resolved]
  - Device issue [Not Recovered/Not Resolved]
  - Nerve injury [Recovering/Resolving]
  - Device dislocation [Not Recovered/Not Resolved]
  - Complication of device removal [Not Recovered/Not Resolved]
  - Incorrect product administration duration [Unknown]

NARRATIVE: CASE EVENT DATE: 20160501
